FAERS Safety Report 6319286-1 (Version None)
Quarter: 2009Q3

REPORT INFORMATION
  Report Type: 
  Country: None (occurrence: None)
  Receive Date: 20090821
  Receipt Date: 20080821
  Transmission Date: 20100115
  Serious: No
  Sender: FDA-Public Use
  Company Number: US-ABBOTT-08P-163-0471970-00

PATIENT
  Sex: Male
  Weight: 88.53 kg

DRUGS (6)
  1. NIASPAN [Suspect]
     Indication: BLOOD CHOLESTEROL INCREASED
     Dosage: DAILY AT BEDTIME
     Route: 048
     Dates: start: 20080815
  2. NIASPAN [Suspect]
     Dosage: DAILY AT BEDTIME
     Route: 048
     Dates: start: 20080701, end: 20080815
  3. BENADRYL [Suspect]
     Indication: PRURITUS
     Route: 048
     Dates: start: 20080818, end: 20080818
  4. BENADRYL [Suspect]
     Indication: RASH
  5. TELMISARTAN [Concomitant]
     Indication: HYPERTENSION
     Route: 048
  6. MULTI-VITAMIN [Concomitant]
     Indication: DRUG USE FOR UNKNOWN INDICATION

REACTIONS (4)
  - BLOOD PRESSURE INCREASED [None]
  - PAIN OF SKIN [None]
  - PRURITUS [None]
  - RASH PAPULAR [None]
